FAERS Safety Report 7331138-7 (Version None)
Quarter: 2011Q1

REPORT INFORMATION
  Report Type: 
  Country: None (occurrence: None)
  Receive Date: 20110228
  Receipt Date: 20110228
  Transmission Date: 20110831
  Serious: Yes (Hospitalization)
  Sender: FDA-Public Use
  Company Number: None

PATIENT
  Age: 40 Year
  Sex: Female
  Weight: 70.3075 kg

DRUGS (3)
  1. ALLI [Suspect]
     Indication: WEIGHT DECREASED
     Dosage: OTC ALLI PILL TID PO FOR 2 WEEKS PRIOR TO SYMPTOMS
     Route: 048
  2. FLUOXETINE HCL [Concomitant]
  3. MIRAPEX [Concomitant]

REACTIONS (9)
  - FATIGUE [None]
  - ABDOMINAL PAIN [None]
  - OEDEMA PERIPHERAL [None]
  - HEADACHE [None]
  - PYREXIA [None]
  - RASH [None]
  - ARTHRALGIA [None]
  - HEPATIC FUNCTION ABNORMAL [None]
  - ANAEMIA [None]
